FAERS Safety Report 10730491 (Version 5)
Quarter: 2016Q3

REPORT INFORMATION
  Report Type: Report from Study
  Country: FR (occurrence: FR)
  Receive Date: 20150122
  Receipt Date: 20160913
  Transmission Date: 20161109
  Serious: Yes (Death, Life-Threatening)
  Sender: FDA-Public Use
  Company Number: FR-AMGEN-FRACT2015005167

PATIENT
  Age: 18 Year
  Sex: Female
  Weight: 48 kg

DRUGS (64)
  1. LOXEN [Concomitant]
     Active Substance: NICARDIPINE HYDROCHLORIDE
     Indication: HYPERTENSION
     Dosage: 2.5 UG/KG/MIN, UNK
     Dates: start: 201404
  2. LONOTEN [Concomitant]
     Active Substance: MINOXIDIL
     Indication: HYPERTENSIVE CRISIS
     Dosage: 5 MG, BID
     Dates: start: 201412
  3. PENTACARINAT [Concomitant]
     Active Substance: PENTAMIDINE ISETHIONATE
     Dosage: UNK UNK, QMO
  4. RANIPLEX [Concomitant]
     Active Substance: RANITIDINE HYDROCHLORIDE
     Dosage: 20 MG, BID
  5. FUNGIZONE [Concomitant]
     Active Substance: AMPHOTERICIN B
  6. NOXAFIL [Concomitant]
     Active Substance: POSACONAZOLE
  7. TRANXENE T-TAB [Concomitant]
     Active Substance: CLORAZEPATE DIPOTASSIUM
     Indication: SLEEP DISORDER
  8. CYMEVAN [Concomitant]
     Active Substance: GANCICLOVIR
  9. CODEINE [Concomitant]
     Active Substance: CODEINE
  10. CICLO [Concomitant]
  11. SOLUPRED [Concomitant]
     Active Substance: PREDNISOLONE
     Dosage: UNK
     Route: 048
     Dates: start: 20140718
  12. KEPPRA [Concomitant]
     Active Substance: LEVETIRACETAM
     Dosage: 500 MG, BID
  13. ZOVIRAX [Concomitant]
     Active Substance: ACYCLOVIR
     Indication: HAEMATURIA
     Dosage: 600 X 3 MG/D
  14. AMBISOME [Concomitant]
     Active Substance: AMPHOTERICIN B
     Dosage: 40 MG, QD
  15. DEBRIDAT [Concomitant]
     Active Substance: TRIMEBUTINE MALEATE
     Indication: ABDOMINAL PAIN
     Dosage: UNK
  16. TARGOCID [Concomitant]
     Active Substance: TEICOPLANIN
  17. FOSCARNET [Concomitant]
     Active Substance: FOSCARNET
     Dosage: UNK
     Route: 048
     Dates: start: 20141120
  18. NPLATE [Concomitant]
     Active Substance: ROMIPLOSTIM
     Indication: THROMBOCYTOPENIA
     Dosage: UNK
     Dates: start: 20140320
  19. CATAPRESSAN [Concomitant]
     Active Substance: CLONIDINE
     Indication: HYPERTENSIVE CRISIS
     Dosage: 150 MUG, TID
     Dates: start: 201412
  20. TRANDATE [Concomitant]
     Active Substance: LABETALOL HYDROCHLORIDE
     Indication: HYPERTENSION
     Dosage: 200 MG, BID
  21. TRANDATE [Concomitant]
     Active Substance: LABETALOL HYDROCHLORIDE
     Indication: HYPERTENSIVE CRISIS
  22. VERSATIS [Concomitant]
     Active Substance: LIDOCAINE
     Dosage: 1 PATCH/DAY
  23. FORTUM [Concomitant]
     Active Substance: CEFTAZIDIME
     Dosage: 1 G, QD
  24. VANCOMYCIN [Concomitant]
     Active Substance: VANCOMYCIN
     Dosage: 100 MG, TID
  25. CIRCADIN [Concomitant]
     Active Substance: MELATONIN
     Dosage: 2 MG, QD
  26. CIDOFOVIR. [Concomitant]
     Active Substance: CIDOFOVIR
  27. TRAMADOL. [Concomitant]
     Active Substance: TRAMADOL
     Indication: ABDOMINAL PAIN
     Dosage: UNK
     Dates: start: 20140627
  28. PCE [Concomitant]
     Active Substance: ERYTHROMYCIN ETHYLSUCCINATE
     Dosage: UNK
     Route: 048
  29. NUBAIN [Concomitant]
     Active Substance: NALBUPHINE HYDROCHLORIDE
     Dosage: 10 MG, 4-6 QD
  30. BAYPRESS [Concomitant]
     Active Substance: NITRENDIPINE
     Indication: HYPERTENSION
     Dosage: 40 MG, QD
     Dates: start: 201404
  31. INSULIN [Concomitant]
     Active Substance: INSULIN NOS
     Indication: HYPERGLYCAEMIA
  32. NEORAL [Concomitant]
     Active Substance: CYCLOSPORINE
     Dosage: UNK
     Route: 048
  33. NEUPOGEN [Concomitant]
     Active Substance: FILGRASTIM
     Dosage: 200 MUG, QD
  34. LOXEN [Concomitant]
     Active Substance: NICARDIPINE HYDROCHLORIDE
     Indication: HYPERTENSIVE CRISIS
  35. RIVOTRIL [Concomitant]
     Active Substance: CLONAZEPAM
     Dosage: UNK
     Dates: end: 20150105
  36. APC [Concomitant]
     Active Substance: ASPIRIN\CAFFEINE\PHENACETIN
     Dosage: UNK UNK, QD
  37. BACTRIM [Concomitant]
     Active Substance: SULFAMETHOXAZOLE\TRIMETHOPRIM
  38. ZELITREX [Concomitant]
     Active Substance: VALACYCLOVIR HYDROCHLORIDE
  39. ZOLOFT [Concomitant]
     Active Substance: SERTRALINE HYDROCHLORIDE
  40. STILNOX [Concomitant]
     Active Substance: ZOLPIDEM TARTRATE
     Indication: SLEEP DISORDER
     Dosage: UNK
  41. MORPHINE [Concomitant]
     Active Substance: MORPHINE
     Indication: ARTHRALGIA
  42. PARACETAMOL [Concomitant]
     Active Substance: ACETAMINOPHEN
     Indication: PHARYNGITIS
  43. AMIKLIN [Concomitant]
     Active Substance: AMIKACIN SULFATE
  44. LASILIX [Concomitant]
     Active Substance: FUROSEMIDE
  45. ROVALCYTE [Concomitant]
     Active Substance: VALGANCICLOVIR HYDROCHLORIDE
     Dosage: UNK
  46. ACUPAN [Concomitant]
     Active Substance: NEFOPAM HYDROCHLORIDE
     Dosage: 1 MG/KG, QD
  47. PERFALGAN [Concomitant]
     Active Substance: ACETAMINOPHEN
     Dosage: 400 MG, Q4H
  48. ATARAX [Concomitant]
     Active Substance: HYDROXYZINE\HYDROXYZINE HYDROCHLORIDE
     Dosage: 25 MG, BID
  49. LAROXYL [Concomitant]
     Active Substance: AMITRIPTYLINE
     Dosage: 1/2 CAPSULE, BID
  50. PRIVIGEN [Concomitant]
     Active Substance: HUMAN IMMUNOGLOBULIN G
     Dosage: 10 G, QWK
  51. SIROLIMUS. [Concomitant]
     Active Substance: SIROLIMUS
  52. MORPHINE [Concomitant]
     Active Substance: MORPHINE
     Indication: MYALGIA
     Dosage: UNK
  53. MABTHERA [Concomitant]
     Active Substance: RITUXIMAB
  54. EFFERALGAN [Concomitant]
     Active Substance: ACETAMINOPHEN
  55. PEGFILGRASTIM [Suspect]
     Active Substance: PEGFILGRASTIM
     Indication: PRODUCT USED FOR UNKNOWN INDICATION
     Dosage: 200 MUG, UNK
     Route: 048
  56. RAPAMUNE [Concomitant]
     Active Substance: SIROLIMUS
     Dosage: 1.5 MG, UNK
     Route: 048
  57. CORTANCYL [Concomitant]
     Active Substance: PREDNISONE
     Dosage: 0.7 MG/KG, QD
     Route: 048
     Dates: start: 20140718
  58. PECFENT [Concomitant]
     Active Substance: FENTANYL CITRATE
     Dosage: 6 MUG, Q6H
     Route: 045
  59. VITAMIN K [Concomitant]
     Active Substance: PHYTONADIONE
     Dosage: 10 MG, 3 TIMES/WK
  60. SURGESTONE [Concomitant]
     Active Substance: PROMEGESTONE
     Dosage: 1 CAPSULE, QD
  61. AUGMENTIN [Concomitant]
     Active Substance: AMOXICILLIN\CLAVULANATE POTASSIUM
     Indication: PHARYNGITIS
  62. ICAZ [Concomitant]
     Active Substance: ISRADIPINE
  63. DIPROSONE [Concomitant]
     Active Substance: BETAMETHASONE DIPROPIONATE
     Indication: GRAFT VERSUS HOST DISEASE
     Dosage: UNK
     Dates: end: 20140408
  64. CLOXACILLIN [Concomitant]
     Active Substance: CLOXACILLIN

REACTIONS (4)
  - Aplasia [Fatal]
  - Viral infection [Fatal]
  - Respiratory distress [Fatal]
  - Graft versus host disease [Fatal]

NARRATIVE: CASE EVENT DATE: 20150109
